FAERS Safety Report 17225981 (Version 2)
Quarter: 2020Q1

REPORT INFORMATION
  Report Type: Report from Study
  Country: JP (occurrence: JP)
  Receive Date: 20200102
  Receipt Date: 20200204
  Transmission Date: 20200409
  Serious: Yes (Death, Hospitalization, Other)
  Sender: FDA-Public Use
  Company Number: JP-EMD SERONO-9067045

PATIENT
  Age: 68 Year
  Sex: Female
  Weight: 59 kg

DRUGS (3)
  1. RESTAMIN                           /00000402/ [Concomitant]
     Active Substance: DIPHENHYDRAMINE HYDROCHLORIDE
     Indication: PREMEDICATION
     Route: 048
     Dates: start: 20181127, end: 20190108
  2. BAVENCIO [Suspect]
     Active Substance: AVELUMAB
     Indication: NEUROENDOCRINE CARCINOMA OF THE SKIN
     Dosage: THE SPEED OF BAVENCIO WAS 250ML/HR
     Route: 041
     Dates: start: 20181127, end: 20190108
  3. ACELIO [Concomitant]
     Active Substance: ACETAMINOPHEN
     Indication: PREMEDICATION
     Route: 041
     Dates: start: 20181127, end: 20190108

REACTIONS (7)
  - Jaundice cholestatic [Recovering/Resolving]
  - Decreased appetite [Recovering/Resolving]
  - Disease progression [Fatal]
  - Influenza [Recovered/Resolved]
  - Pancreatic carcinoma [Unknown]
  - Faeces discoloured [Recovering/Resolving]
  - Haematuria [Recovering/Resolving]

NARRATIVE: CASE EVENT DATE: 20190109
